FAERS Safety Report 23896786 (Version 2)
Quarter: 2024Q2

REPORT INFORMATION
  Report Type: Spontaneous
  Country: US (occurrence: US)
  Receive Date: 20240524
  Receipt Date: 20240531
  Transmission Date: 20240716
  Serious: Yes (Life-Threatening, Hospitalization, Other)
  Sender: FDA-Public Use
  Company Number: US-TORRENT-00013573

PATIENT
  Age: 66 Year
  Sex: Male

DRUGS (1)
  1. LAMOTRIGINE [Suspect]
     Active Substance: LAMOTRIGINE
     Indication: Bipolar disorder
     Dosage: 21G OF LAMOTRIGINE IN IMMEDIATE RELEASE TABLETS (TOTAL)
     Route: 048

REACTIONS (4)
  - Intentional overdose [Unknown]
  - Cardiotoxicity [Recovered/Resolved]
  - Unresponsive to stimuli [Recovered/Resolved]
  - Arrhythmia [Recovered/Resolved]
